FAERS Safety Report 17110984 (Version 1)
Quarter: 2019Q4

REPORT INFORMATION
  Report Type: Spontaneous
  Country: US (occurrence: US)
  Receive Date: 20191109
  Receipt Date: 20191109
  Transmission Date: 20200122
  Serious: Yes (Death, Hospitalization)
  Sender: FDA-Public Use
  Company Number: None

PATIENT
  Age: 56 Year
  Sex: Female
  Weight: 60.32 kg

DRUGS (1)
  1. ASPIRIN. [Suspect]
     Active Substance: ASPIRIN
     Dates: start: 20171116, end: 20191021

REACTIONS (10)
  - Cerebrovascular accident [None]
  - Unresponsive to stimuli [None]
  - Intraventricular haemorrhage [None]
  - Pneumonia aspiration [None]
  - Pupil fixed [None]
  - Haemorrhage intracranial [None]
  - Respiratory failure [None]
  - Posturing [None]
  - Neurological decompensation [None]
  - Pupils unequal [None]

NARRATIVE: CASE EVENT DATE: 20191022
